FAERS Safety Report 17699563 (Version 1)
Quarter: 2020Q2

REPORT INFORMATION
  Report Type: Spontaneous
  Country: US (occurrence: US)
  Receive Date: 20200423
  Receipt Date: 20200423
  Transmission Date: 20200714
  Serious: Yes (Death)
  Sender: FDA-Public Use
  Company Number: US-AJANTA PHARMA USA INC.-2083076

PATIENT
  Age: 71 Year
  Sex: Female
  Weight: 73.64 kg

DRUGS (26)
  1. TRACLEER [Suspect]
     Active Substance: BOSENTAN
     Dates: start: 20181003, end: 20191107
  2. CANAGLIFLOZIN [Concomitant]
     Active Substance: CANAGLIFLOZIN
     Route: 048
     Dates: end: 2019
  3. ESOMEPRAZOLE SODIUM. [Concomitant]
     Active Substance: ESOMEPRAZOLE SODIUM
     Route: 048
     Dates: end: 2019
  4. ESBRIET [Concomitant]
     Active Substance: PIRFENIDONE
     Route: 048
     Dates: end: 2019
  5. UPTRAVI [Concomitant]
     Active Substance: SELEXIPAG
     Route: 048
     Dates: end: 2019
  6. OMEGA-3 FATTY ACIDS [Concomitant]
     Active Substance: OMEGA-3 FATTY ACIDS
     Route: 048
     Dates: end: 2019
  7. BOSENTAN. [Suspect]
     Active Substance: BOSENTAN
     Route: 048
     Dates: start: 20191107, end: 20191223
  8. ATORVASTATIN CALCIUM. [Concomitant]
     Active Substance: ATORVASTATIN CALCIUM
     Route: 048
     Dates: end: 2019
  9. HUMALOG [Concomitant]
     Active Substance: INSULIN LISPRO
     Route: 058
  10. MONTELUKAST [Concomitant]
     Active Substance: MONTELUKAST SODIUM
     Route: 048
     Dates: end: 2019
  11. ASPIRIN. [Concomitant]
     Active Substance: ASPIRIN
     Route: 046
     Dates: end: 2019
  12. TRESIBA [Concomitant]
     Active Substance: INSULIN DEGLUDEC
     Route: 058
     Dates: end: 2019
  13. ONDANSETRON [Concomitant]
     Active Substance: ONDANSETRON
     Route: 048
     Dates: end: 2019
  14. RANOLAZINE. [Concomitant]
     Active Substance: RANOLAZINE
     Route: 048
     Dates: end: 2019
  15. ALBUTEROL. [Concomitant]
     Active Substance: ALBUTEROL
     Dates: end: 2019
  16. METOPROLOL SUCCINATE ER [Concomitant]
     Active Substance: METOPROLOL SUCCINATE
     Route: 048
     Dates: end: 2019
  17. NITROGLYCERIN. [Concomitant]
     Active Substance: NITROGLYCERIN
     Route: 062
     Dates: end: 2019
  18. NABUMETONE. [Concomitant]
     Active Substance: NABUMETONE
     Route: 048
     Dates: end: 2019
  19. FENOFIBRIC ACID. [Concomitant]
     Active Substance: FENOFIBRIC ACID
     Route: 048
     Dates: end: 2019
  20. TICAGRELOR. [Concomitant]
     Active Substance: TICAGRELOR
     Route: 048
     Dates: end: 2019
  21. CALCIUM CARBONATE-VITAMIN D3 [Concomitant]
  22. CALCIUM CARBONATE WITH VITAMIN D (CHOLECALCIFEROL) [Concomitant]
     Active Substance: CALCIUM CARBONATE\CHOLECALCIFEROL
     Route: 048
     Dates: end: 2019
  23. SILDENAFIL (ANDA 210394) [Suspect]
     Active Substance: SILDENAFIL CITRATE
     Indication: PULMONARY ARTERIAL HYPERTENSION
     Route: 048
     Dates: end: 20191223
  24. FERROUS SULFATE. [Concomitant]
     Active Substance: FERROUS SULFATE
     Route: 048
     Dates: end: 2019
  25. SODIUM CHLORIDE. [Concomitant]
     Active Substance: SODIUM CHLORIDE
     Route: 045
     Dates: end: 2019
  26. OXYGEN. [Concomitant]
     Active Substance: OXYGEN

REACTIONS (3)
  - Chronic obstructive pulmonary disease [Unknown]
  - Acute respiratory failure [Fatal]
  - Idiopathic pulmonary fibrosis [Fatal]

NARRATIVE: CASE EVENT DATE: 20191215
